FAERS Safety Report 8439776-5 (Version None)
Quarter: 2012Q2

REPORT INFORMATION
  Report Type: 
  Country: None (occurrence: None)
  Receive Date: 20120615
  Receipt Date: 20120605
  Transmission Date: 20120825
  Serious: Yes (Other)
  Sender: FDA-Public Use
  Company Number: FR-JNJFOC-20120314511

PATIENT
  Age: 52 Year
  Sex: Male
  Weight: 83 kg

DRUGS (6)
  1. REMICADE [Suspect]
     Dosage: DOSE: 6 OR 9 MG/KG
     Route: 042
     Dates: start: 20120103, end: 20120301
  2. PREVISCAN (FLUINDIONE) [Concomitant]
  3. REMICADE [Suspect]
     Indication: CROHN'S DISEASE
     Dosage: DOSE: 6 OR 9 MG/KG
     Route: 042
     Dates: start: 20110531
  4. REMICADE [Suspect]
     Dosage: DOSE: 6 OR 9 MG/KG
     Route: 042
     Dates: start: 20110726
  5. REMICADE [Suspect]
     Dosage: DOSE: 6 OR 9 MG/KG
     Route: 042
     Dates: start: 20111108
  6. REMICADE [Suspect]
     Dosage: DOSE: 6 OR 9 MG/KG
     Route: 042
     Dates: start: 20110913

REACTIONS (1)
  - MALIGNANT MELANOMA [None]
